FAERS Safety Report 5034733-3 (Version None)
Quarter: 2006Q2

REPORT INFORMATION
  Report Type: 
  Country: None (occurrence: None)
  Receive Date: 20060621
  Receipt Date: 20060530
  Transmission Date: 20061013
  Serious: Yes (Other)
  Sender: FDA-Public Use
  Company Number: 001#1#2006-00173

PATIENT
  Age: 77 Year
  Sex: Female

DRUGS (9)
  1. ALPROSTADIL [Suspect]
     Indication: PERIPHERAL ARTERIAL OCCLUSIVE DISEASE
     Dosage: 40 MCG (20 MCG 2 IN 1 DAY (S))
     Route: 042
     Dates: start: 20060505, end: 20060511
  2. SODIUM CHLORIDE [Suspect]
     Indication: PERIPHERAL ARTERIAL OCCLUSIVE DISEASE
     Dosage: 500 ML (250 ML 2 IN 2 HOUR (S))
     Route: 042
     Dates: start: 20060505, end: 20060511
  3. IRENAT (SODIUM PERCHLORATE) [Concomitant]
  4. ACETYLSALICYLIC ACID SRT [Concomitant]
  5. SIMVAHEXAL (SIMVASTATIN) [Concomitant]
  6. TOREM (TORASEMIDE) [Concomitant]
  7. ENALAPRIL MALEATE [Concomitant]
  8. METOPROLOL SUCCINATE [Concomitant]
  9. BAYOTENSIN        (NITRENDIPINE) [Concomitant]

REACTIONS (6)
  - INDURATION [None]
  - PAIN [None]
  - PAIN IN EXTREMITY [None]
  - PANNICULITIS [None]
  - SKIN DISCOLOURATION [None]
  - SKIN REACTION [None]
